FAERS Safety Report 10798207 (Version 6)
Quarter: 2018Q1

REPORT INFORMATION
  Report Type: Spontaneous
  Country: US (occurrence: US)
  Receive Date: 20150216
  Receipt Date: 20180130
  Transmission Date: 20180508
  Serious: Yes (Other)
  Sender: FDA-Public Use
  Company Number: US-PFIZER INC-2015057718

PATIENT
  Age: 43 Year
  Sex: Female
  Weight: 111 kg

DRUGS (7)
  1. LYRICA [Suspect]
     Active Substance: PREGABALIN
     Indication: NERVE INJURY
     Dosage: 100 MG, 3X/DAY
     Dates: start: 201409
  2. KLONOPIN [Concomitant]
     Active Substance: CLONAZEPAM
     Dosage: UNK
     Dates: start: 201308
  3. SEROQUEL [Concomitant]
     Active Substance: QUETIAPINE FUMARATE
     Dosage: UNK
  4. PROZAC [Concomitant]
     Active Substance: FLUOXETINE HYDROCHLORIDE
     Dosage: UNK
     Dates: start: 201409
  5. CLONOPIN [Concomitant]
     Active Substance: CLONAZEPAM
     Dosage: UNK
  6. LYRICA [Suspect]
     Active Substance: PREGABALIN
     Indication: FIBROMYALGIA
     Dosage: 100 MG, 3X/DAY
     Route: 048
     Dates: start: 20141110, end: 20150131
  7. LYRICA [Suspect]
     Active Substance: PREGABALIN
     Indication: NEUROPATHY PERIPHERAL

REACTIONS (11)
  - Hallucination, auditory [Recovered/Resolved]
  - Suicidal ideation [Not Recovered/Not Resolved]
  - Disturbance in attention [Recovered/Resolved]
  - Hypoaesthesia [Recovered/Resolved]
  - Withdrawal syndrome [Recovered/Resolved]
  - Anger [Recovered/Resolved]
  - Sleep disorder [Recovered/Resolved]
  - Pain [Recovered/Resolved]
  - Panic attack [Not Recovered/Not Resolved]
  - Cognitive disorder [Recovered/Resolved]
  - Pain in extremity [Recovered/Resolved]

NARRATIVE: CASE EVENT DATE: 201501
